FAERS Safety Report 13520512 (Version 1)
Quarter: 2017Q2

REPORT INFORMATION
  Report Type: Report from Study
  Country: AT (occurrence: AT)
  Receive Date: 20170508
  Receipt Date: 20170508
  Transmission Date: 20170830
  Serious: Yes (Other)
  Sender: FDA-Public Use
  Company Number: AT-ROCHE-1931393

PATIENT
  Age: 54 Year

DRUGS (3)
  1. RITUXIMAB [Suspect]
     Active Substance: RITUXIMAB
     Indication: STEM CELL TRANSPLANT
     Route: 065
  2. MYCOPHENOLATE MOFETIL. [Suspect]
     Active Substance: MYCOPHENOLATE MOFETIL
     Indication: STEM CELL TRANSPLANT
     Route: 065
  3. ETANERCEPT [Suspect]
     Active Substance: ETANERCEPT
     Indication: STEM CELL TRANSPLANT
     Route: 065

REACTIONS (4)
  - Acute respiratory distress syndrome [Unknown]
  - Pneumonia [Unknown]
  - Corona virus infection [Unknown]
  - Human bocavirus infection [Unknown]
